FAERS Safety Report 18141973 (Version 1)
Quarter: 2020Q3

REPORT INFORMATION
  Report Type: Report from Study
  Country: CA (occurrence: CA)
  Receive Date: 20200812
  Receipt Date: 20200812
  Transmission Date: 20201103
  Serious: Yes (Other)
  Sender: FDA-Public Use
  Company Number: NVSC2020CA124955

PATIENT
  Sex: Male

DRUGS (2)
  1. DILTIAZEM HYDROCHLORIDE. [Suspect]
     Active Substance: DILTIAZEM HYDROCHLORIDE
     Indication: MIGRAINE
     Dosage: UNK
     Route: 065
     Dates: start: 2018, end: 201904
  2. BISOPROLOL FUMARATE. [Suspect]
     Active Substance: BISOPROLOL FUMARATE
     Indication: MIGRAINE
     Dosage: UNK
     Route: 065
     Dates: start: 201904

REACTIONS (3)
  - Off label use [Unknown]
  - Drug ineffective [Unknown]
  - Cerebrovascular accident [Unknown]
